FAERS Safety Report 8091268-1 (Version None)
Quarter: 2012Q1

REPORT INFORMATION
  Report Type: 
  Country: None (occurrence: None)
  Receive Date: 20120129
  Receipt Date: 20111017
  Transmission Date: 20120608
  Serious: No
  Sender: FDA-Public Use
  Company Number: US-ABBOTT-11P-163-0865342-00

PATIENT
  Age: 54 Year
  Sex: Female

DRUGS (7)
  1. CALCIUM [Concomitant]
     Indication: MINERAL SUPPLEMENTATION
     Dosage: DAILY
  2. LIALDA [Concomitant]
     Indication: CROHN'S DISEASE
     Dosage: A DAY
  3. HUMIRA [Suspect]
     Indication: CROHN'S DISEASE
     Dates: start: 20110801
  4. MERCAPTOPURINE [Concomitant]
     Indication: CROHN'S DISEASE
     Dosage: DAILY
  5. AVISTA [Concomitant]
     Indication: PROPHYLAXIS
     Dosage: DAILY
  6. MULTI-VITAMIN [Concomitant]
     Indication: VITAMIN SUPPLEMENTATION
     Dosage: DAILY
  7. AVISTA [Concomitant]
     Indication: BREAST CANCER

REACTIONS (2)
  - RASH [None]
  - INJECTION SITE SWELLING [None]
